FAERS Safety Report 4529774-6 (Version None)
Quarter: 2004Q4

REPORT INFORMATION
  Report Type: 
  Country: None (occurrence: None)
  Receive Date: 20041126
  Receipt Date: 20040830
  Transmission Date: 20050328
  Serious: No
  Sender: FDA-Public Use
  Company Number: SU-2004-002639

PATIENT
  Sex: Female

DRUGS (5)
  1. BENICAR [Suspect]
     Indication: HYPERTENSION
     Dosage: 20 MG QD PO
     Route: 048
     Dates: start: 20030601, end: 20040501
  2. BENICAR [Suspect]
     Indication: HYPERTENSION
     Dosage: 40 MG QD PO
     Route: 048
     Dates: start: 20040501, end: 20040601
  3. PREMARIN [Concomitant]
  4. BENICAR [Suspect]
     Indication: HYPERTENSION
     Dosage: 20 MG QD PO
     Route: 048
     Dates: start: 20040601
  5. VIOXX [Suspect]
     Dates: end: 20040801

REACTIONS (4)
  - ABDOMINAL PAIN [None]
  - BACK PAIN [None]
  - DRY MOUTH [None]
  - ORAL MUCOSAL BLISTERING [None]
